FAERS Safety Report 23430398 (Version 1)
Quarter: 2024Q1

REPORT INFORMATION
  Report Type: Spontaneous
  Country: US (occurrence: US)
  Receive Date: 20240123
  Receipt Date: 20240123
  Transmission Date: 20240409
  Serious: No
  Sender: FDA-Public Use
  Company Number: US-JNJFOC-20240101123

PATIENT

DRUGS (3)
  1. STELARA [Suspect]
     Active Substance: USTEKINUMAB
     Indication: Product used for unknown indication
     Route: 058
     Dates: start: 202109, end: 202205
  2. OMEPRAZOLE [Concomitant]
     Active Substance: OMEPRAZOLE
  3. SIMVASTATIN [Concomitant]
     Active Substance: SIMVASTATIN

REACTIONS (3)
  - Drug ineffective [Unknown]
  - Musculoskeletal stiffness [Recovering/Resolving]
  - Swelling [Recovering/Resolving]
